FAERS Safety Report 12631525 (Version 2)
Quarter: 2016Q3

REPORT INFORMATION
  Report Type: Spontaneous
  Country: US (occurrence: US)
  Receive Date: 20160808
  Receipt Date: 20160808
  Transmission Date: 20161109
  Serious: No
  Sender: FDA-Public Use
  Company Number: US-BEH-2015054452

PATIENT
  Sex: Female
  Weight: 76 kg

DRUGS (25)
  1. MULTIVITAMIN [Concomitant]
     Active Substance: VITAMINS
  2. CLONAZEPAM. [Concomitant]
     Active Substance: CLONAZEPAM
  3. AMPHETAMINE [Concomitant]
     Active Substance: AMPHETAMINE
  4. VITAMIN D [Concomitant]
     Active Substance: CHOLECALCIFEROL
  5. HYDROCORTISONE. [Concomitant]
     Active Substance: HYDROCORTISONE
  6. ZANTAC [Concomitant]
     Active Substance: RANITIDINE HYDROCHLORIDE
  7. BOOST [Concomitant]
     Active Substance: DIETARY SUPPLEMENT
  8. CYMBALTA [Concomitant]
     Active Substance: DULOXETINE HYDROCHLORIDE
  9. HIZENTRA [Suspect]
     Active Substance: HUMAN IMMUNOGLOBULIN G
     Indication: IMMUNODEFICIENCY COMMON VARIABLE
     Route: 058
  10. PHENERGAN [Concomitant]
     Active Substance: PROMETHAZINE HYDROCHLORIDE
  11. BACTROBAN [Concomitant]
     Active Substance: MUPIROCIN\MUPIROCIN CALCIUM
  12. MORPHINE SULFATE. [Concomitant]
     Active Substance: MORPHINE SULFATE
  13. ATROVENT [Concomitant]
     Active Substance: IPRATROPIUM BROMIDE
  14. TRIAMCINOLONE [Concomitant]
     Active Substance: TRIAMCINOLONE
  15. COMPAZINE [Concomitant]
     Active Substance: PROCHLORPERAZINE MALEATE
  16. HIBICLEN [Concomitant]
  17. CYANOCOBALAMIN. [Concomitant]
     Active Substance: CYANOCOBALAMIN
  18. KEFLEX [Concomitant]
     Active Substance: CEPHALEXIN
  19. AMMONIA LACTATE CREAM [Concomitant]
  20. BACLOFEN. [Concomitant]
     Active Substance: BACLOFEN
  21. ALBUTEROL. [Concomitant]
     Active Substance: ALBUTEROL
  22. AFRIN [Concomitant]
     Active Substance: OXYMETAZOLINE
  23. WELLBUTRIN [Concomitant]
     Active Substance: BUPROPION HYDROCHLORIDE
  24. FOLIC ACID. [Concomitant]
     Active Substance: FOLIC ACID
  25. IMODIUM [Concomitant]
     Active Substance: LOPERAMIDE HYDROCHLORIDE

REACTIONS (1)
  - Infusion site abscess [Unknown]
